FAERS Safety Report 14610102 (Version 3)
Quarter: 2018Q2

REPORT INFORMATION
  Report Type: Spontaneous
  Country: US (occurrence: US)
  Receive Date: 20180307
  Receipt Date: 20180618
  Transmission Date: 20180711
  Serious: Yes (Other)
  Sender: FDA-Public Use
  Company Number: US-PFIZER INC-2018093524

PATIENT
  Age: 56 Year
  Sex: Female

DRUGS (1)
  1. XELJANZ XR [Suspect]
     Active Substance: TOFACITINIB CITRATE
     Dosage: 11 MG, UNK
     Dates: start: 201803, end: 20180612

REACTIONS (6)
  - Blood pressure increased [Unknown]
  - Constipation [Unknown]
  - Upper respiratory tract infection [Unknown]
  - Nausea [Unknown]
  - Kidney infection [Unknown]
  - Headache [Unknown]

NARRATIVE: CASE EVENT DATE: 2018
